FAERS Safety Report 4321549-6 (Version None)
Quarter: 2004Q1

REPORT INFORMATION
  Report Type: 
  Country: None (occurrence: None)
  Receive Date: 20040322
  Receipt Date: 20030728
  Transmission Date: 20041129
  Serious: No
  Sender: FDA-Public Use
  Company Number: US-BRISTOL-MYERS SQUIBB COMPANY-12342036

PATIENT
  Age: 29 Year
  Sex: Female

DRUGS (3)
  1. MONISTAT [Suspect]
     Indication: VAGINAL MYCOSIS
     Route: 067
     Dates: start: 20030727, end: 20030727
  2. CONTRACEPTIVE [Concomitant]
     Dosage: PATCH
     Route: 062
  3. ALLERGY SHOTS [Concomitant]

REACTIONS (1)
  - PRURITUS [None]
